FAERS Safety Report 5848866-2 (Version None)
Quarter: 2008Q3

REPORT INFORMATION
  Report Type: 
  Country: None (occurrence: None)
  Receive Date: 20080818
  Receipt Date: 20080806
  Transmission Date: 20090109
  Serious: Yes (Hospitalization)
  Sender: FDA-Public Use
  Company Number: FR-PFIZER INC-2008065561

PATIENT
  Age: 6 Year
  Sex: Male

DRUGS (2)
  1. CEFPODOXIME PROXETIL [Suspect]
     Indication: NASOPHARYNGITIS
     Route: 048
     Dates: start: 20080501, end: 20080512
  2. AMOXICILLIN [Suspect]
     Indication: TONSILLITIS
     Dosage: DAILY DOSE:1GRAM
     Route: 048
     Dates: start: 20080627, end: 20080627

REACTIONS (3)
  - ARTHRALGIA [None]
  - FIXED ERUPTION [None]
  - URTICARIA [None]
